FAERS Safety Report 12614806 (Version 2)
Quarter: 2016Q3

REPORT INFORMATION
  Report Type: Spontaneous
  Country: US (occurrence: US)
  Receive Date: 20160802
  Receipt Date: 20160802
  Transmission Date: 20161109
  Serious: Yes (Other)
  Sender: FDA-Public Use
  Company Number: US-PFIZER INC-3191769

PATIENT
  Age: 50 Year
  Sex: Female
  Weight: 77.27 kg

DRUGS (3)
  1. BEVACIZUMAB [Concomitant]
     Active Substance: BEVACIZUMAB
     Indication: COLON CANCER
     Dosage: 595.5 MG, ONCE
     Route: 042
     Dates: start: 20160219
  2. OXALIPLATIN. [Suspect]
     Active Substance: OXALIPLATIN
     Indication: COLON CANCER
     Dosage: 249.6 MG, FREQ: 1 DAY; INTERVAL: 20
     Route: 041
     Dates: start: 20160219, end: 20160219
  3. OXALIPLATIN. [Suspect]
     Active Substance: OXALIPLATIN
     Dosage: 249.6 MG, FREQ: 1 DAY; INTERVAL: 20
     Route: 041
     Dates: start: 20160219, end: 20160219

REACTIONS (2)
  - Dyspnoea [Recovered/Resolved]
  - Anxiety [Recovered/Resolved]

NARRATIVE: CASE EVENT DATE: 20160219
